FAERS Safety Report 6858001-X (Version None)
Quarter: 2010Q3

REPORT INFORMATION
  Report Type: 
  Country: None (occurrence: None)
  Receive Date: 20100715
  Receipt Date: 20100712
  Transmission Date: 20110219
  Serious: Yes (Other)
  Sender: FDA-Public Use
  Company Number: 20109005

PATIENT
  Sex: Male

DRUGS (1)
  1. LIORESAL [Suspect]
     Indication: MUSCLE SPASTICITY
     Dosage: MCG,DAILY, INTRATHECAL
     Route: 037

REACTIONS (6)
  - ABNORMAL BEHAVIOUR [None]
  - DEVICE RELATED INFECTION [None]
  - IRRITABILITY [None]
  - MEDICAL DEVICE SITE REACTION [None]
  - MUSCLE SPASTICITY [None]
  - SWELLING [None]
